FAERS Safety Report 21252714 (Version 1)
Quarter: 2022Q3

REPORT INFORMATION
  Report Type: Spontaneous
  Country: ES (occurrence: ES)
  Receive Date: 20220825
  Receipt Date: 20220825
  Transmission Date: 20221027
  Serious: Yes (Hospitalization)
  Sender: FDA-Public Use
  Company Number: None

PATIENT
  Age: 73 Year
  Sex: Male

DRUGS (6)
  1. PEMETREXED [Suspect]
     Active Substance: PEMETREXED
     Indication: Lung neoplasm malignant
     Dosage: PEMETREXED (2944A) , UNIT DOSE :1.13 GRAM   , FREQUENCY TIME :  1 MONTH , DURATION : 70 DAYS
     Route: 065
     Dates: start: 20220118, end: 20220329
  2. KEYTRUDA [Suspect]
     Active Substance: PEMBROLIZUMAB
     Indication: Lung neoplasm malignant
     Dosage: FORM STRENGTH : 25 MG/ML , 1 VIAL OF 4 ML , UNIT DOSE : 266.6 MG , FREQUENCY TIME : 1 MONTH , DURATI
     Dates: start: 20220118, end: 20220329
  3. ASPIRIN [Concomitant]
     Active Substance: ASPIRIN
     Indication: Prophylaxis
     Dosage: EFG 100 MG GASTRO-RESISTANT TABLETS, 60 TABLETS ,FORM STRENGTH : 100 MG ,  UNIT DOSE : 100 MG  , FRE
     Dates: start: 201803
  4. OMEPRAZOLE [Concomitant]
     Active Substance: OMEPRAZOLE
     Indication: Gastrointestinal disorder prophylaxis
     Dosage: OMEPRAZOL (2141A) , UNIT DOSE : 30 MG  , FREQUENCY TIME :  1 DAY
     Dates: start: 20220321
  5. ATORVASTATIN [Concomitant]
     Active Substance: ATORVASTATIN
     Indication: Hyperlipidaemia
     Dosage: ATORVASTATINA (7400A) , UNIT DOSE :40 MG   , FREQUENCY TIME : 1 DAY
     Dates: start: 201803
  6. BISOPROLOL [Concomitant]
     Active Substance: BISOPROLOL
     Indication: Hypertension
     Dosage: BISOPROLOL (2328A) , UNIT DOSE : 2.5 MG  , FREQUENCY TIME : 1 DAY
     Dates: start: 202104

REACTIONS (1)
  - Tubulointerstitial nephritis [Recovered/Resolved]

NARRATIVE: CASE EVENT DATE: 20220527
